FAERS Safety Report 25656306 (Version 1)
Quarter: 2025Q3

REPORT INFORMATION
  Report Type: Report from Study
  Country: US (occurrence: US)
  Receive Date: 20250807
  Receipt Date: 20250807
  Transmission Date: 20251020
  Serious: Yes (Death, Other)
  Sender: UCB
  Company Number: US-UCBSA-2025037026

PATIENT
  Sex: Male

DRUGS (1)
  1. ROTIGOTINE [Suspect]
     Active Substance: ROTIGOTINE
     Indication: Parkinson^s disease
     Dosage: 6 MILLIGRAM, ONCE DAILY (QD)
     Route: 062
     Dates: end: 20250524

REACTIONS (6)
  - Parkinson^s disease [Fatal]
  - Immobilisation prolonged [Unknown]
  - Spinal operation [Unknown]
  - Dyspnoea [Unknown]
  - Sleep deficit [Unknown]
  - Stress [Unknown]
